FAERS Safety Report 6882070-4 (Version None)
Quarter: 2010Q2

REPORT INFORMATION
  Report Type: 
  Country: None (occurrence: None)
  Receive Date: 20100630
  Receipt Date: 20090505
  Transmission Date: 20101027
  Serious: No
  Sender: FDA-Public Use
  Company Number: 2009-01093

PATIENT
  Age: 59 Year
  Sex: Female
  Weight: 63.5036 kg

DRUGS (2)
  1. ZICAM COLD REMEDY NASAL GEL [Suspect]
     Dosage: 3 DAYS
     Dates: start: 20090409, end: 20090410
  2. CALCIUM WITH VITAMIN D [Concomitant]

REACTIONS (1)
  - ANOSMIA [None]
